FAERS Safety Report 5038372-X (Version None)
Quarter: 2006Q2

REPORT INFORMATION
  Report Type: 
  Country: None (occurrence: None)
  Receive Date: 20060601
  Receipt Date: 20060123
  Transmission Date: 20061013
  Serious: No
  Sender: FDA-Public Use
  Company Number: 2006PV007513

PATIENT
  Age: 68 Year
  Sex: Female
  Weight: 95.2554 kg

DRUGS (4)
  1. BYETTA [Suspect]
     Indication: DIABETES MELLITUS NON-INSULIN-DEPENDENT
     Dosage: 5 MCG;BID;SC
     Route: 058
     Dates: start: 20060120, end: 20060121
  2. ACIPHEX [Concomitant]
  3. STARLIX [Concomitant]
  4. AVANDIA [Concomitant]

REACTIONS (3)
  - ABDOMINAL DISTENSION [None]
  - COLD SWEAT [None]
  - FLATULENCE [None]
